FAERS Safety Report 13291098 (Version 1)
Quarter: 2017Q1

REPORT INFORMATION
  Report Type: Spontaneous
  Country: US (occurrence: US)
  Receive Date: 20170302
  Receipt Date: 20170302
  Transmission Date: 20170428
  Serious: Yes (Other)
  Sender: FDA-Public Use
  Company Number: None

PATIENT
  Age: 57 Year
  Sex: Male
  Weight: 99.45 kg

DRUGS (10)
  1. TRAMADOL. [Concomitant]
     Active Substance: TRAMADOL
  2. LYSINOPRIL [Concomitant]
  3. FENOFIBRATE. [Concomitant]
     Active Substance: FENOFIBRATE
  4. SYMVASTATIN [Concomitant]
  5. MULTIVITAMIN [Concomitant]
     Active Substance: VITAMINS
  6. MAGNESIUM [Concomitant]
     Active Substance: MAGNESIUM
  7. EXALGO [Concomitant]
     Active Substance: HYDROMORPHONE HYDROCHLORIDE
  8. CHLORZOXAZONE. [Concomitant]
     Active Substance: CHLORZOXAZONE
  9. HUMCO CALAGESIC [Suspect]
     Active Substance: PRAMOXINE HYDROCHLORIDE\ZINC OXIDE
     Indication: DERMATITIS CONTACT
     Dosage: ?          QUANTITY:4 APPLICATIONS;?
     Route: 061
     Dates: start: 20170227, end: 20170228
  10. CLARITON [Concomitant]
     Active Substance: UNSPECIFIED INGREDIENT

REACTIONS (2)
  - Dermatitis contact [None]
  - Product quality issue [None]

NARRATIVE: CASE EVENT DATE: 20170228
